FAERS Safety Report 6653954-7 (Version None)
Quarter: 2010Q1

REPORT INFORMATION
  Report Type: 
  Country: None (occurrence: None)
  Receive Date: 20100326
  Receipt Date: 20100316
  Transmission Date: 20100710
  Serious: Yes (Hospitalization)
  Sender: FDA-Public Use
  Company Number: US-JNJFOC-20100305006

PATIENT
  Sex: Female

DRUGS (2)
  1. DOXIL [Suspect]
     Indication: OVARIAN CANCER
     Dosage: 5TH INFUSION
     Route: 042
  2. DOXIL [Suspect]
     Route: 042

REACTIONS (2)
  - SKIN EXFOLIATION [None]
  - SMALL INTESTINAL OBSTRUCTION [None]
